FAERS Safety Report 15042652 (Version 1)
Quarter: 2018Q2

REPORT INFORMATION
  Report Type: Report from Study
  Country: BR (occurrence: BR)
  Receive Date: 20180621
  Receipt Date: 20180621
  Transmission Date: 20180711
  Serious: Yes (Hospitalization, Other)
  Sender: FDA-Public Use
  Company Number: PHHY2018BR003826

PATIENT
  Age: 59 Year
  Sex: Female
  Weight: 62 kg

DRUGS (2)
  1. ACLASTA [Suspect]
     Active Substance: ZOLEDRONIC ACID
     Dosage: 1 DF (5 MG/100 ML), Q12MO
     Route: 042
     Dates: start: 2016, end: 2016
  2. ACLASTA [Suspect]
     Active Substance: ZOLEDRONIC ACID
     Indication: OSTEOPOROSIS
     Dosage: 1 DF (5 MG/100 ML), Q12MO
     Route: 042
     Dates: start: 2014

REACTIONS (2)
  - Hernia [Unknown]
  - Intervertebral disc displacement [Unknown]

NARRATIVE: CASE EVENT DATE: 201709
